FAERS Safety Report 15744748 (Version 3)
Quarter: 2019Q2

REPORT INFORMATION
  Report Type: Report from Study
  Country: CO (occurrence: CO)
  Receive Date: 20181220
  Receipt Date: 20190419
  Transmission Date: 20190711
  Serious: Yes (Hospitalization)
  Sender: FDA-Public Use
  Company Number: CO-ASTELLAS-2018US053922

PATIENT
  Age: 30 Year
  Sex: Female
  Weight: 56 kg

DRUGS (4)
  1. TACROLIMUS. [Suspect]
     Active Substance: TACROLIMUS
     Dosage: 6 MG, ONCE DAILY (1 CAPSULE OF 5 MG AND 1 CAPSULES OF 1 MG)
     Route: 048
  2. MYCOPHENOLATE [Concomitant]
     Active Substance: MYCOPHENOLIC ACID
     Indication: RENAL TRANSPLANT
     Route: 048
     Dates: start: 20160302
  3. TACROLIMUS. [Suspect]
     Active Substance: TACROLIMUS
     Indication: RENAL TRANSPLANT
     Dosage: 7 MG, ONCE DAILY (1 CAPSULE OF 5 MG AND 2 CAPSULES OF 1 MG)
     Route: 048
     Dates: start: 20160302
  4. CELLCEPT [Concomitant]
     Active Substance: MYCOPHENOLATE MOFETIL\MYCOPHENOLATE MOFETIL HYDROCHLORIDE
     Indication: TRANSPLANT
     Route: 048
     Dates: start: 20160302

REACTIONS (10)
  - Renal pain [Not Recovered/Not Resolved]
  - Renal pain [Recovered/Resolved]
  - Ascites [Recovered/Resolved]
  - Urinary tract infection [Not Recovered/Not Resolved]
  - Fall [Unknown]
  - Blood potassium decreased [Not Recovered/Not Resolved]
  - Urinary tract infection [Recovered/Resolved]
  - Mobility decreased [Not Recovered/Not Resolved]
  - Pyrexia [Not Recovered/Not Resolved]
  - Muscle spasms [Unknown]

NARRATIVE: CASE EVENT DATE: 20181212
